FAERS Safety Report 20419758 (Version 1)
Quarter: 2022Q1

REPORT INFORMATION
  Report Type: Spontaneous
  Country: US (occurrence: US)
  Receive Date: 20220203
  Receipt Date: 20220203
  Transmission Date: 20220423
  Serious: Yes (Hospitalization, Other)
  Sender: FDA-Public Use
  Company Number: US-ASTELLAS-2022US003385

PATIENT
  Age: 70 Year
  Sex: Male

DRUGS (7)
  1. ENFORTUMAB VEDOTIN [Interacting]
     Active Substance: ENFORTUMAB VEDOTIN
     Indication: Transitional cell cancer of renal pelvis and ureter metastatic
     Dosage: 1.25 MG/KG, CYCLIC (ON DAYS 1,8,15 OF 28 DAY CYCLE)
     Route: 042
  2. ENFORTUMAB VEDOTIN [Interacting]
     Active Substance: ENFORTUMAB VEDOTIN
     Dosage: 0.75 MG/KG, CYCLIC
     Route: 042
  3. ENFORTUMAB VEDOTIN [Interacting]
     Active Substance: ENFORTUMAB VEDOTIN
     Route: 042
  4. DARUNAVIR [Interacting]
     Active Substance: DARUNAVIR
     Indication: HIV infection
     Dosage: UNK UNK, UNKNOWN FREQ.
     Route: 065
  5. RITONAVIR [Interacting]
     Active Substance: RITONAVIR
     Indication: HIV infection
     Dosage: UNK UNK, UNKNOWN FREQ.
     Route: 065
  6. RALTEGRAVIR [Concomitant]
     Active Substance: RALTEGRAVIR
     Indication: HIV infection
     Dosage: UNK UNK, UNKNOWN FREQ.
     Route: 065
  7. PEMBROLIZUMAB [Concomitant]
     Active Substance: PEMBROLIZUMAB
     Indication: Transitional cell cancer of renal pelvis and ureter metastatic
     Dosage: UNK UNK, CYCLIC (7 CYCLES)
     Route: 065

REACTIONS (12)
  - Mucosal inflammation [Recovered/Resolved]
  - Rash pruritic [Recovered/Resolved]
  - Candida infection [Recovered/Resolved]
  - Decreased appetite [Recovered/Resolved]
  - Diarrhoea [Recovered/Resolved]
  - Colitis [Recovered/Resolved]
  - Acute kidney injury [Recovered/Resolved]
  - Pancytopenia [Recovered/Resolved]
  - Neuropathy peripheral [Unknown]
  - Blister [Unknown]
  - Toxicity to various agents [Recovered/Resolved]
  - Drug interaction [Unknown]
